FAERS Safety Report 11205704 (Version 1)
Quarter: 2015Q2

REPORT INFORMATION
  Report Type: Spontaneous
  Country: US (occurrence: US)
  Receive Date: 20150622
  Receipt Date: 20150622
  Transmission Date: 20150821
  Serious: No
  Sender: FDA-Public Use
  Company Number: US-ASTRAZENECA-2015SE56965

PATIENT
  Sex: Female

DRUGS (2)
  1. METFORMIN [Concomitant]
     Active Substance: METFORMIN HYDROCHLORIDE
  2. BYETTA [Suspect]
     Active Substance: EXENATIDE
     Indication: TYPE 2 DIABETES MELLITUS
     Route: 058

REACTIONS (8)
  - Dizziness [Unknown]
  - Weight decreased [Unknown]
  - Procedural pain [Unknown]
  - Diabetes mellitus inadequate control [Unknown]
  - Nausea [Unknown]
  - Neck mass [Not Recovered/Not Resolved]
  - Blood glucose decreased [Unknown]
  - Drug effect incomplete [Unknown]
